FAERS Safety Report 13351440 (Version 2)
Quarter: 2017Q2

REPORT INFORMATION
  Report Type: Spontaneous
  Country: US (occurrence: US)
  Receive Date: 20170320
  Receipt Date: 20170410
  Transmission Date: 20170830
  Serious: Yes (Death, Hospitalization)
  Sender: FDA-Public Use
  Company Number: US-UNITED THERAPEUTICS-UNT-2017-003630

PATIENT
  Age: 65 Year
  Sex: Female
  Weight: 70.68 kg

DRUGS (1)
  1. REMODULIN [Suspect]
     Active Substance: TREPROSTINIL
     Indication: PULMONARY ARTERIAL HYPERTENSION
     Dosage: 0.020 ?G/KG, CONTINUING
     Route: 041
     Dates: start: 20170222

REACTIONS (7)
  - Tachycardia [Unknown]
  - Hypoxia [Unknown]
  - Fatigue [Unknown]
  - Death [Fatal]
  - Dyspnoea [Unknown]
  - Hypotension [Unknown]
  - Bone pain [Unknown]

NARRATIVE: CASE EVENT DATE: 20170310
